FAERS Safety Report 18358764 (Version 1)
Quarter: 2020Q4

REPORT INFORMATION
  Report Type: Spontaneous
  Country: US (occurrence: US)
  Receive Date: 20201008
  Receipt Date: 20201008
  Transmission Date: 20210114
  Serious: No
  Sender: FDA-Public Use
  Company Number: US-BRISTOL-MYERS SQUIBB COMPANY-BMS-2020-083083

PATIENT
  Sex: Male

DRUGS (3)
  1. LENVIMA [Concomitant]
     Active Substance: LENVATINIB
     Indication: ENDOCRINE NEOPLASM MALIGNANT
  2. WARFARIN SODIUM. [Suspect]
     Active Substance: WARFARIN SODIUM
     Indication: THROMBOSIS
     Dosage: 3 MILLIGRAM, QWK
     Route: 065
  3. LENVIMA [Concomitant]
     Active Substance: LENVATINIB
     Indication: RENAL CELL CARCINOMA
     Dosage: 18 MILLIGRAM, QD
     Route: 065
     Dates: start: 20200916

REACTIONS (4)
  - Saliva altered [Unknown]
  - Drooling [Unknown]
  - International normalised ratio abnormal [Unknown]
  - Gingival disorder [Unknown]
